FAERS Safety Report 13182008 (Version 2)
Quarter: 2017Q2

REPORT INFORMATION
  Report Type: Spontaneous
  Country: US (occurrence: US)
  Receive Date: 20170202
  Receipt Date: 20170502
  Transmission Date: 20170830
  Serious: No
  Sender: FDA-Public Use
  Company Number: US-IMPAX LABORATORIES, INC-2016-IPXL-02177

PATIENT
  Sex: Male
  Weight: 73 kg

DRUGS (3)
  1. RYTARY [Suspect]
     Active Substance: CARBIDOPA\LEVODOPA
     Indication: DIZZINESS
     Dosage: 23.75/95 MG; 1 CAPSULE 3 TIMES DAILY
     Route: 048
     Dates: start: 201610
  2. RYTARY [Suspect]
     Active Substance: CARBIDOPA\LEVODOPA
     Indication: GAIT DISTURBANCE
  3. RYTARY [Suspect]
     Active Substance: CARBIDOPA\LEVODOPA
     Indication: MUSCULAR WEAKNESS

REACTIONS (1)
  - Drug ineffective [Unknown]
